FAERS Safety Report 16544374 (Version 1)
Quarter: 2019Q3

REPORT INFORMATION
  Report Type: Report from Study
  Country: AU (occurrence: AU)
  Receive Date: 20190709
  Receipt Date: 20190709
  Transmission Date: 20191004
  Serious: Yes (Hospitalization)
  Sender: FDA-Public Use
  Company Number: PHHY2019AU155861

PATIENT
  Sex: Female

DRUGS (12)
  1. PENTAMIDINE [Concomitant]
     Active Substance: PENTAMIDINE
     Indication: ANTIBIOTIC PROPHYLAXIS
     Dosage: 60 MG, QMO
     Route: 042
     Dates: start: 20190416
  2. OXYCODONE [Concomitant]
     Active Substance: OXYCODONE
     Indication: PRODUCT USED FOR UNKNOWN INDICATION
     Dosage: 1.5 MG, PRN
     Route: 065
     Dates: start: 20190305
  3. METRONIDAZOLE. [Concomitant]
     Active Substance: METRONIDAZOLE
     Indication: INFECTION
     Dosage: 150 MG, TID
     Route: 065
     Dates: start: 20190507, end: 20190517
  4. ONDANSETRON [Concomitant]
     Active Substance: ONDANSETRON
     Indication: PROPHYLAXIS OF NAUSEA AND VOMITING
     Dosage: 3 MG, PRN
     Route: 065
     Dates: start: 20190327
  5. VENETOCLAX. [Suspect]
     Active Substance: VENETOCLAX
     Indication: NEOPLASM MALIGNANT
     Dosage: 120 MG, QD
     Route: 065
     Dates: start: 20190326
  6. PANADOL [Concomitant]
     Active Substance: ACETAMINOPHEN
     Indication: PRODUCT USED FOR UNKNOWN INDICATION
     Dosage: 195 MG, PRN
     Route: 065
     Dates: start: 20190305
  7. LACTULOSE. [Concomitant]
     Active Substance: LACTULOSE
     Indication: PROPHYLAXIS OF NAUSEA AND VOMITING
     Dosage: 5 ML, PRN
     Route: 065
     Dates: start: 20190302
  8. METRONIDAZOLE. [Concomitant]
     Active Substance: METRONIDAZOLE
     Dosage: 150 MG, TID
     Route: 065
     Dates: start: 20190604, end: 20190611
  9. HYCAMTIN [Suspect]
     Active Substance: TOPOTECAN HYDROCHLORIDE
     Indication: NEOPLASM MALIGNANT
     Dosage: 0.45 MG/M2, QD
     Route: 042
     Dates: start: 20190328, end: 20190401
  10. HYCAMTIN [Suspect]
     Active Substance: TOPOTECAN HYDROCHLORIDE
     Dosage: 0.45 MG/M2, QD
     Route: 042
     Dates: start: 20190424, end: 20190428
  11. CYCLOPHOSPHAMIDE. [Suspect]
     Active Substance: CYCLOPHOSPHAMIDE
     Indication: NEOPLASM MALIGNANT
     Dosage: 150 MG/M2, QD
     Route: 042
     Dates: start: 20190328, end: 20190601
  12. OLIVE OIL [Concomitant]
     Active Substance: OLIVE OIL
     Indication: PROPHYLAXIS
     Dosage: UNK
     Route: 061
     Dates: start: 20190328

REACTIONS (2)
  - Pallor [Unknown]
  - Anaemia [Recovered/Resolved]

NARRATIVE: CASE EVENT DATE: 20190610
